FAERS Safety Report 5290060-0 (Version None)
Quarter: 2007Q1

REPORT INFORMATION
  Report Type: 
  Country: None (occurrence: None)
  Receive Date: 20070330
  Receipt Date: 20070315
  Transmission Date: 20070707
  Serious: Yes (Other)
  Sender: FDA-Public Use
  Company Number: ACO_0328_2007

PATIENT
  Age: 11 Year
  Sex: Male

DRUGS (1)
  1. SIRDALUD [Suspect]
     Dosage: DF TPL
     Route: 064

REACTIONS (3)
  - DISINHIBITION [None]
  - DRUG EXPOSURE DURING PREGNANCY [None]
  - HYPERKINESIA [None]
